FAERS Safety Report 9879358 (Version 2)
Quarter: 2024Q2

REPORT INFORMATION
  Report Type: Spontaneous
  Country: AU (occurrence: AU)
  Receive Date: 20140206
  Receipt Date: 20240531
  Transmission Date: 20240716
  Serious: Yes (Death)
  Sender: FDA-Public Use
  Company Number: PHHY2014AU013974

PATIENT
  Age: 61 Year
  Sex: Female

DRUGS (9)
  1. CARBAMAZEPINE [Interacting]
     Active Substance: CARBAMAZEPINE
     Indication: Product used for unknown indication
     Dosage: 5 MG/L, UNK
     Route: 065
  2. AMITRIPTYLINE [Interacting]
     Active Substance: AMITRIPTYLINE
     Indication: Product used for unknown indication
     Dosage: 0.3 MG/L, UNK
     Route: 065
  3. OXYCODONE [Interacting]
     Active Substance: OXYCODONE\OXYCODONE HYDROCHLORIDE
     Indication: Product used for unknown indication
     Dosage: 0.03 MG/L, UNK
     Route: 065
  4. ACETAMINOPHEN [Interacting]
     Active Substance: ACETAMINOPHEN
     Indication: Product used for unknown indication
     Dosage: UNK
     Route: 065
  5. DULOXETINE [Interacting]
     Active Substance: DULOXETINE
     Indication: Product used for unknown indication
     Dosage: UNK
     Route: 065
  6. CODEINE PHOSPHATE [Interacting]
     Active Substance: CODEINE PHOSPHATE
     Indication: Product used for unknown indication
     Dosage: 0.03 MG/L, UNK
     Route: 065
  7. DIAZEPAM [Interacting]
     Active Substance: DIAZEPAM
     Indication: Product used for unknown indication
     Dosage: 0.06 MG/L, UNK
     Route: 065
  8. PROPOXYPHENE HYDROCHLORIDE [Interacting]
     Active Substance: PROPOXYPHENE HYDROCHLORIDE
     Indication: Product used for unknown indication
     Dosage: 0.08 MG/L, UNK
     Route: 065
  9. ZOPICLONE [Interacting]
     Active Substance: ZOPICLONE
     Indication: Product used for unknown indication
     Dosage: 0.1 MG/L, UNK
     Route: 065

REACTIONS (8)
  - Toxicity to various agents [Fatal]
  - Pneumonia [Fatal]
  - Arteriosclerosis coronary artery [Fatal]
  - Obesity [Fatal]
  - Cardiomegaly [Fatal]
  - Inflammation [Fatal]
  - Thyroid adenoma [Fatal]
  - Infection [Fatal]
